FAERS Safety Report 17189212 (Version 2)
Quarter: 2025Q2

REPORT INFORMATION
  Report Type: Report from Study
  Country: PT (occurrence: PT)
  Receive Date: 20191223
  Receipt Date: 20250428
  Transmission Date: 20250717
  Serious: Yes (Other)
  Sender: AUROBINDO
  Company Number: PT-ABBVIE-19K-130-3182949-00

PATIENT

DRUGS (3)
  1. LAMIVUDINE [Suspect]
     Active Substance: LAMIVUDINE
     Indication: HIV-2 infection
     Route: 065
     Dates: start: 2009, end: 2014
  2. ZIDOVUDINE [Suspect]
     Active Substance: ZIDOVUDINE
     Indication: HIV-2 infection
     Route: 065
     Dates: start: 2009, end: 2014
  3. LOPINAVIR\RITONAVIR [Suspect]
     Active Substance: LOPINAVIR\RITONAVIR
     Indication: HIV-2 infection
     Route: 065
     Dates: start: 2009, end: 2014

REACTIONS (2)
  - Pathogen resistance [Unknown]
  - Virologic failure [Unknown]
